FAERS Safety Report 15163142 (Version 1)
Quarter: 2018Q3

REPORT INFORMATION
  Report Type: Report from Study
  Country: US (occurrence: US)
  Receive Date: 20180718
  Receipt Date: 20180718
  Transmission Date: 20181010
  Serious: No
  Sender: FDA-Public Use
  Company Number: US-AMGEN-USASP2014029685

PATIENT
  Age: 37 Year
  Sex: Male

DRUGS (4)
  1. ENBREL [Suspect]
     Active Substance: ETANERCEPT
     Indication: PSORIATIC ARTHROPATHY
     Dosage: 50 MG, QWK
     Route: 058
     Dates: end: 201404
  2. VECTICAL [Concomitant]
     Active Substance: CALCITRIOL
     Dosage: UNK, 3MCG/GM
  3. DOVONEX [Concomitant]
     Active Substance: CALCIPOTRIENE
     Dosage: 0.005 %, UNK
  4. CLOBETASOL [Concomitant]
     Active Substance: CLOBETASOL
     Dosage: 0.05 %, UNK

REACTIONS (1)
  - Drug ineffective [Unknown]
